FAERS Safety Report 8079423-8 (Version None)
Quarter: 2012Q1

REPORT INFORMATION
  Report Type: 
  Country: None (occurrence: None)
  Receive Date: 20120128
  Receipt Date: 20110824
  Transmission Date: 20120608
  Serious: No
  Sender: FDA-Public Use
  Company Number: US-ABBOTT-11P-163-0848768-00

PATIENT
  Sex: Female
  Weight: 56.75 kg

DRUGS (12)
  1. PREDNISONE TAB [Suspect]
     Indication: PRODUCT USED FOR UNKNOWN INDICATION
     Dosage: DECREASING DOSE
  2. CALCIUM [Concomitant]
     Indication: PRODUCT USED FOR UNKNOWN INDICATION
  3. ASPIRIN [Concomitant]
     Indication: PRODUCT USED FOR UNKNOWN INDICATION
  4. METOPROLOL TARTRATE [Concomitant]
     Indication: PRODUCT USED FOR UNKNOWN INDICATION
  5. ESTRA RING [Concomitant]
     Indication: PRODUCT USED FOR UNKNOWN INDICATION
  6. OMEPRIZOLE [Concomitant]
     Indication: PRODUCT USED FOR UNKNOWN INDICATION
  7. POTASSIUM [Concomitant]
     Indication: PRODUCT USED FOR UNKNOWN INDICATION
  8. HUMIRA [Suspect]
     Indication: CROHN'S DISEASE
     Route: 058
  9. LASIX [Concomitant]
     Indication: PRODUCT USED FOR UNKNOWN INDICATION
  10. ASACOL [Concomitant]
     Indication: PRODUCT USED FOR UNKNOWN INDICATION
  11. LIPITOR [Concomitant]
     Indication: PRODUCT USED FOR UNKNOWN INDICATION
  12. M.V.I. [Concomitant]
     Indication: PRODUCT USED FOR UNKNOWN INDICATION

REACTIONS (8)
  - ABDOMINAL RIGIDITY [None]
  - ANAEMIA [None]
  - MYOPATHY [None]
  - RECTAL HAEMORRHAGE [None]
  - MALAISE [None]
  - MUSCULAR WEAKNESS [None]
  - FATIGUE [None]
  - STRESS [None]
